FAERS Safety Report 9330589 (Version 1)
Quarter: 2013Q2

REPORT INFORMATION
  Report Type: Spontaneous
  Country: DE (occurrence: DE)
  Receive Date: 20130605
  Receipt Date: 20130605
  Transmission Date: 20140414
  Serious: Yes (Hospitalization)
  Sender: FDA-Public Use
  Company Number: PHHY2013DE025831

PATIENT
  Sex: Male

DRUGS (1)
  1. GLIVEC [Suspect]
     Indication: CHRONIC MYELOID LEUKAEMIA
     Dosage: 400 MG, DAILY
     Dates: start: 200412

REACTIONS (4)
  - Gastric ulcer haemorrhage [Unknown]
  - Faeces discoloured [Unknown]
  - Haematochezia [Unknown]
  - Haemoglobin decreased [Recovering/Resolving]
